FAERS Safety Report 4999956-8 (Version None)
Quarter: 2006Q2

REPORT INFORMATION
  Report Type: 
  Country: None (occurrence: None)
  Receive Date: 20060510
  Receipt Date: 20060510
  Transmission Date: 20061013
  Serious: No
  Sender: FDA-Public Use
  Company Number: None

PATIENT
  Sex: Female

DRUGS (1)
  1. KENALOG-40 [Suspect]
     Indication: MACULAR OEDEMA
     Dosage: .1 CC PRN INTRA-VITREAL
     Route: 050
     Dates: start: 20060419

REACTIONS (3)
  - EYE INFLAMMATION [None]
  - HYPOPYON [None]
  - VISUAL DISTURBANCE [None]
